FAERS Safety Report 8997731 (Version 1)
Quarter: 2013Q1

REPORT INFORMATION
  Report Type: Report from Study
  Country: PL (occurrence: PL)
  Receive Date: 20130104
  Receipt Date: 20130104
  Transmission Date: 20140127
  Serious: Yes (Other)
  Sender: FDA-Public Use
  Company Number: PL-ROCHE-1176584

PATIENT
  Age: 40 Year
  Sex: Female

DRUGS (3)
  1. TRASTUZUMAB [Suspect]
     Indication: BREAST CANCER METASTATIC
     Route: 042
     Dates: start: 2002, end: 2008
  2. DOCETAXEL [Suspect]
     Indication: BREAST CANCER METASTATIC
     Route: 065
     Dates: start: 2002, end: 2002
  3. CARBOPLATIN [Suspect]
     Indication: BREAST CANCER METASTATIC
     Route: 065
     Dates: start: 2002, end: 2002

REACTIONS (3)
  - Nausea [Recovered/Resolved]
  - Disease progression [Not Recovered/Not Resolved]
  - Alopecia [Recovered/Resolved]
